FAERS Safety Report 10448952 (Version 1)
Quarter: 2014Q3

REPORT INFORMATION
  Report Type: Spontaneous
  Country: NL (occurrence: NL)
  Receive Date: 20140912
  Receipt Date: 20140912
  Transmission Date: 20150326
  Serious: Yes (Death)
  Sender: FDA-Public Use
  Company Number: NL-CIPLA LTD.-2014NL01254

PATIENT

DRUGS (2)
  1. PACLITAXEL. [Suspect]
     Active Substance: PACLITAXEL
     Indication: OESOPHAGEAL CARCINOMA
     Dosage: 50 MG/M2,WEEKLY DURING RT AT DAY 1, 8, 15, 22, 29 (AND 35).
  2. CARBOPLATIN. [Suspect]
     Active Substance: CARBOPLATIN
     Indication: OESOPHAGEAL CARCINOMA
     Dosage: AUC2, WEEKLY DURING RT AT DAY 1, 8, 15, 22, 29 (AND 35)

REACTIONS (2)
  - Hepatic failure [Fatal]
  - Diarrhoea [Fatal]
